FAERS Safety Report 5821999-2 (Version None)
Quarter: 2008Q3

REPORT INFORMATION
  Report Type: 
  Country: None (occurrence: None)
  Receive Date: 20080724
  Receipt Date: 20080714
  Transmission Date: 20090109
  Serious: Yes (Hospitalization, Disabling, Other)
  Sender: FDA-Public Use
  Company Number: US-MERCK-0805USA06282

PATIENT
  Age: 40 Year
  Sex: Female
  Weight: 59 kg

DRUGS (10)
  1. FOSAMAX [Suspect]
     Indication: OSTEOPOROSIS
     Route: 048
     Dates: start: 20070101, end: 20080101
  2. OXYCONTIN [Concomitant]
     Route: 065
  3. PERCOCET [Concomitant]
     Route: 065
  4. KLONOPIN [Concomitant]
     Route: 065
  5. XANAX [Concomitant]
     Route: 065
  6. FOSAMAX [Suspect]
     Route: 048
     Dates: start: 20080226, end: 20080501
  7. CYTARABINE AND METHOTREXATE AND METHYLPREDNISOLONE [Concomitant]
     Route: 065
  8. ADVAIR DISKUS 100/50 [Concomitant]
     Route: 065
  9. [THERAPY UNSPECIFIED] [Concomitant]
     Indication: BIPOLAR DISORDER
     Route: 065
  10. SOMA [Concomitant]
     Route: 065

REACTIONS (13)
  - BACK PAIN [None]
  - BONE DISORDER [None]
  - HEADACHE [None]
  - HYPOAESTHESIA [None]
  - INTERVERTEBRAL DISC PROTRUSION [None]
  - LUMBAR SPINAL STENOSIS [None]
  - MUSCULAR WEAKNESS [None]
  - PAIN [None]
  - PAIN IN JAW [None]
  - PARAESTHESIA [None]
  - SPINAL FRACTURE [None]
  - UTERINE DISORDER [None]
  - VISION BLURRED [None]
